FAERS Safety Report 6694355-5 (Version None)
Quarter: 2010Q2

REPORT INFORMATION
  Report Type: 
  Country: None (occurrence: None)
  Receive Date: 20100423
  Receipt Date: 20100414
  Transmission Date: 20101027
  Serious: Yes (Hospitalization, Other)
  Sender: FDA-Public Use
  Company Number: US-AMGEN-QUU406089

PATIENT
  Sex: Female

DRUGS (8)
  1. NPLATE [Suspect]
     Indication: IDIOPATHIC THROMBOCYTOPENIC PURPURA
     Dates: start: 20091005, end: 20091109
  2. PREDNISOLONE [Concomitant]
  3. LISINOPRIL [Concomitant]
  4. LEVOTHYROXINE [Concomitant]
  5. PLAQUENIL [Concomitant]
  6. ALPRAZOLAM [Concomitant]
  7. CLONAZEPAM [Concomitant]
  8. DARVOCET-N 100 [Concomitant]

REACTIONS (2)
  - THERAPEUTIC RESPONSE DECREASED [None]
  - THROMBOCYTOPENIA [None]
